FAERS Safety Report 4947478-2 (Version None)
Quarter: 2006Q1

REPORT INFORMATION
  Report Type: 
  Country: None (occurrence: None)
  Receive Date: 20060320
  Receipt Date: 20060308
  Transmission Date: 20060701
  Serious: Yes (Other)
  Sender: FDA-Public Use
  Company Number: CA-JNJFOC-20051201759

PATIENT
  Sex: Female
  Weight: 63 kg

DRUGS (9)
  1. REMICADE [Suspect]
     Route: 042
  2. REMICADE [Suspect]
     Dosage: THIS WAS PATIENT'S SECOND INFUSION.
     Route: 042
  3. REMICADE [Suspect]
     Indication: RHEUMATOID ARTHRITIS
     Route: 042
  4. TYLENOL (CAPLET) [Concomitant]
     Route: 048
  5. TYLENOL (CAPLET) [Concomitant]
     Indication: PREMEDICATION
     Route: 048
  6. BENADRYL [Concomitant]
     Route: 042
  7. BENADRYL [Concomitant]
     Indication: PREMEDICATION
     Route: 042
  8. SOLU-CORTEF [Concomitant]
     Route: 042
  9. SOLU-CORTEF [Concomitant]
     Indication: PREMEDICATION
     Route: 042

REACTIONS (16)
  - ANXIETY [None]
  - BLOOD PRESSURE INCREASED [None]
  - BODY TEMPERATURE INCREASED [None]
  - CHILLS [None]
  - CYANOSIS [None]
  - ERYTHEMA [None]
  - EYE OEDEMA [None]
  - FEELING COLD [None]
  - HEADACHE [None]
  - HEART RATE INCREASED [None]
  - INFUSION RELATED REACTION [None]
  - OCULAR HYPERAEMIA [None]
  - PRURITUS [None]
  - RASH [None]
  - RESTLESSNESS [None]
  - URTICARIA [None]
